FAERS Safety Report 16633574 (Version 1)
Quarter: 2019Q3

REPORT INFORMATION
  Report Type: Spontaneous
  Country: US (occurrence: US)
  Receive Date: 20190725
  Receipt Date: 20190725
  Transmission Date: 20191004
  Serious: Yes (Other)
  Sender: FDA-Public Use
  Company Number: US-COOPERSURGICAL, INC.-US-2019CPS002217

PATIENT
  Age: 29 Year
  Sex: Female
  Weight: 92.63 kg

DRUGS (1)
  1. PARAGARD T 380A [Suspect]
     Active Substance: COPPER
     Indication: CONTRACEPTION
     Dosage: UNK
     Route: 015
     Dates: start: 20190502, end: 20190524

REACTIONS (5)
  - Uterine haemorrhage [Recovered/Resolved]
  - Device deployment issue [Recovered/Resolved]
  - Abdominal pain [Unknown]
  - Embedded device [Recovered/Resolved]
  - Off label use [Recovered/Resolved]

NARRATIVE: CASE EVENT DATE: 201905
